FAERS Safety Report 12119956 (Version 1)
Quarter: 2016Q1

REPORT INFORMATION
  Report Type: Spontaneous
  Country: None (occurrence: US)
  Receive Date: 20160226
  Receipt Date: 20160226
  Transmission Date: 20160526
  Serious: No
  Sender: FDA-Public Use
  Company Number: US-MEDAC PHARMA, INC.-1048415

PATIENT
  Age: 49 Year
  Sex: Female
  Weight: 59.09 kg

DRUGS (3)
  1. SYNTHROID [Concomitant]
     Active Substance: LEVOTHYROXINE SODIUM
  2. RASUVO [Suspect]
     Active Substance: METHOTREXATE SODIUM
  3. FOLIC ACID. [Concomitant]
     Active Substance: FOLIC ACID

REACTIONS (2)
  - Accidental exposure to product [Recovered/Resolved]
  - Exposure via direct contact [None]

NARRATIVE: CASE EVENT DATE: 20160212
